FAERS Safety Report 5225926-0 (Version None)
Quarter: 2007Q1

REPORT INFORMATION
  Report Type: 
  Country: None (occurrence: None)
  Receive Date: 20070129
  Receipt Date: 20070115
  Transmission Date: 20070707
  Serious: Yes (Other)
  Sender: FDA-Public Use
  Company Number: GXKR2006NL05537

PATIENT
  Age: 62 Year
  Sex: Male

DRUGS (7)
  1. DIPYRIDAMOLE [Suspect]
     Indication: PROPHYLAXIS
     Dosage: 75 MG, BID, ORAL
     Route: 048
     Dates: start: 20060621, end: 20060717
  2. LISINOPRIL [Concomitant]
  3. LYRICA (PREGABALIN) CAPSULE [Concomitant]
  4. SELEKTINE (PRAVASTATIN SODIUM) TABLET [Concomitant]
  5. MOVICOLON (MACROGOL, POTASSIUM CHLORIDE, SODIUM BICARBONATE, SODIUM CH [Concomitant]
  6. ACETYLSALICYLZUUR (ACETYLSALICYLIC ACID) DISPERSIBLE TABLET [Concomitant]
  7. BISOPROLOL FUMARATE (BISOPROLOL FUMARATE) TABLET [Concomitant]

REACTIONS (6)
  - APNOEA [None]
  - CONDITION AGGRAVATED [None]
  - FATIGUE [None]
  - HEADACHE [None]
  - MUSCLE SPASMS [None]
  - PAIN [None]
